FAERS Safety Report 18393509 (Version 1)
Quarter: 2020Q4

REPORT INFORMATION
  Report Type: Spontaneous
  Country: GB (occurrence: GB)
  Receive Date: 20201016
  Receipt Date: 20201016
  Transmission Date: 20210114
  Serious: Yes (Hospitalization)
  Sender: FDA-Public Use
  Company Number: GB-VERTEX PHARMACEUTICALS-2020-020272

PATIENT
  Sex: Female

DRUGS (4)
  1. KALYDECO [Suspect]
     Active Substance: IVACAFTOR
     Indication: CYSTIC FIBROSIS
     Dosage: 150 MG, QD
     Route: 048
  2. PULMOZYME [Concomitant]
     Active Substance: DORNASE ALFA
  3. SYMKEVI [Suspect]
     Active Substance: IVACAFTOR\TEZACAFTOR
     Indication: CYSTIC FIBROSIS
     Dosage: 100/150MG, QD
     Route: 048
  4. TOBI PODHALER [Concomitant]
     Active Substance: TOBRAMYCIN

REACTIONS (1)
  - Lower respiratory tract infection [Unknown]
